FAERS Safety Report 8096598-5 (Version None)
Quarter: 2012Q1

REPORT INFORMATION
  Report Type: 
  Country: None (occurrence: None)
  Receive Date: 20120129
  Receipt Date: 20111121
  Transmission Date: 20120608
  Serious: No
  Sender: FDA-Public Use
  Company Number: US-ABBOTT-11P-163-0876619-00

PATIENT
  Age: 53 Year
  Sex: Female

DRUGS (16)
  1. PREMARIN [Concomitant]
     Indication: HORMONE REPLACEMENT THERAPY
  2. ACTONEL [Concomitant]
     Indication: OSTEOPOROSIS
  3. FORTEO SOL [Concomitant]
     Indication: RHEUMATOID ARTHRITIS
  4. SULFASALAZINE [Concomitant]
     Indication: PRODUCT USED FOR UNKNOWN INDICATION
  5. LEVOTHYROXINE SODIUM [Concomitant]
     Indication: HYPOTHYROIDISM
  6. OMEPRAZOLE [Concomitant]
     Indication: GASTROOESOPHAGEAL REFLUX DISEASE
  7. FOLBEE [Concomitant]
     Indication: VITAMIN SUPPLEMENTATION
  8. LORAZEPAM [Concomitant]
     Indication: DEPRESSION
  9. TRIAZOLAM [Concomitant]
     Indication: INSOMNIA
     Dosage: AT BEDTIME
  10. HYDROCODONE BITARTRATE [Concomitant]
     Indication: PAIN
     Dosage: 10/325MG, PRN
  11. LYRICA [Concomitant]
     Indication: FIBROMYALGIA
  12. CYMBALTA [Concomitant]
     Indication: ARTHRALGIA
  13. PRAVASTATIN [Concomitant]
     Indication: BLOOD CHOLESTEROL INCREASED
  14. METHOTREXATE [Concomitant]
     Indication: RHEUMATOID ARTHRITIS
  15. HUMIRA [Suspect]
     Indication: RHEUMATOID ARTHRITIS
     Dates: start: 20110901
  16. AMITIZA [Concomitant]
     Indication: CONSTIPATION

REACTIONS (1)
  - INJECTION SITE PAIN [None]
